FAERS Safety Report 4359099-3 (Version None)
Quarter: 2004Q2

REPORT INFORMATION
  Report Type: 
  Country: None (occurrence: None)
  Receive Date: 20040517
  Receipt Date: 20040517
  Transmission Date: 20050107
  Serious: Yes (Life-Threatening)
  Sender: FDA-Public Use
  Company Number: None

PATIENT
  Age: 70 Year
  Sex: Female

DRUGS (1)
  1. COLCHICINE INJECTION 0.5 MG/ML-2UDAY BEDFORD LABS [Suspect]
     Indication: GOUT
     Dosage: 2 MG IV ON 4/1 0.5 MG IV Q 6 H X 2 DOSES ON 4/2, 0.5 MG IV Q12D 4/3-4/8, (SEE IMAGE)
     Route: 042
     Dates: start: 20040401, end: 20040408

REACTIONS (4)
  - LEUKOPENIA [None]
  - RESPIRATORY DISTRESS [None]
  - SEPSIS [None]
  - THROMBOCYTOPENIA [None]
